FAERS Safety Report 6387818-3 (Version None)
Quarter: 2009Q4

REPORT INFORMATION
  Report Type: 
  Country: None (occurrence: None)
  Receive Date: 20091005
  Receipt Date: 20090923
  Transmission Date: 20100525
  Serious: Yes (Death, Hospitalization, Other)
  Sender: FDA-Public Use
  Company Number: US-ELI_LILLY_AND_COMPANY-US200908004198

PATIENT
  Sex: Female

DRUGS (1)
  1. FORTEO [Suspect]
     Indication: OSTEOPOROSIS
     Dosage: 20 UG, DAILY (1/D)
     Dates: start: 20090101

REACTIONS (7)
  - AORTIC ANEURYSM [None]
  - BENIGN PANCREATIC NEOPLASM [None]
  - BILE DUCT OBSTRUCTION [None]
  - BLOOD COUNT ABNORMAL [None]
  - CARDIAC FAILURE CONGESTIVE [None]
  - PANCREATIC CYST [None]
  - PANCREATIC DISORDER [None]
